FAERS Safety Report 5742491-X (Version None)
Quarter: 2008Q2

REPORT INFORMATION
  Report Type: 
  Country: None (occurrence: None)
  Receive Date: 20080519
  Receipt Date: 20080508
  Transmission Date: 20081010
  Serious: Yes (Other)
  Sender: FDA-Public Use
  Company Number: DE-AMGEN-UK279309

PATIENT

DRUGS (17)
  1. KEPIVANCE [Suspect]
     Indication: MUCOSAL INFLAMMATION
  2. METHOTREXATE [Concomitant]
  3. CYCLOPHOSPHAMIDE [Concomitant]
  4. RITUXIMAB [Concomitant]
  5. DEXAMETHASONE [Concomitant]
  6. VINCRISTINE [Concomitant]
  7. IFOSFAMIDE [Concomitant]
  8. CYTARABINE [Concomitant]
  9. ETOPOSIDE [Concomitant]
  10. NEUPOGEN [Concomitant]
  11. MORPHINE [Concomitant]
  12. PANTHENOL [Concomitant]
     Route: 061
  13. AMPHOTERICIN B [Concomitant]
     Route: 061
  14. VINDESINE [Concomitant]
  15. ADRIAMYCIN PFS [Concomitant]
  16. PREDNISONE [Concomitant]
  17. UNSPECIFIED ANESTHETIC [Concomitant]

REACTIONS (3)
  - INFECTION [None]
  - NEUTROPENIA [None]
  - PYREXIA [None]
